FAERS Safety Report 11971821 (Version 4)
Quarter: 2016Q1

REPORT INFORMATION
  Report Type: Spontaneous
  Country: JP (occurrence: JP)
  Receive Date: 20160128
  Receipt Date: 20160229
  Transmission Date: 20160526
  Serious: Yes (Death, Other)
  Sender: FDA-Public Use
  Company Number: JP-PFIZER INC-2016034387

PATIENT
  Age: 66 Year
  Sex: Male
  Weight: 59.7 kg

DRUGS (16)
  1. VFEND [Suspect]
     Active Substance: VORICONAZOLE
     Dosage: 400 MG, 2X/DAY
     Route: 048
     Dates: start: 20151222, end: 20160112
  2. METHOTREXATE [Concomitant]
     Active Substance: METHOTREXATE
     Dosage: 11.5 MG, 1X/DAY
     Route: 041
     Dates: start: 20151128, end: 20151128
  3. VFEND [Suspect]
     Active Substance: VORICONAZOLE
     Indication: INFECTION PROPHYLAXIS
     Dosage: 200 MG, 2X/DAY
     Route: 048
     Dates: start: 20150624, end: 20151203
  4. PROGRAF [Suspect]
     Active Substance: TACROLIMUS\TACROLIMUS ANHYDROUS
     Dosage: 0.5 MG, 2X/DAY
     Route: 048
     Dates: start: 20160110, end: 20160112
  5. VFEND [Suspect]
     Active Substance: VORICONAZOLE
     Indication: INFECTION PROPHYLAXIS
     Dosage: 360 MG, 2X/DAY
     Route: 041
     Dates: start: 20151204, end: 201512
  6. PROGRAF [Suspect]
     Active Substance: TACROLIMUS\TACROLIMUS ANHYDROUS
     Indication: PROPHYLAXIS AGAINST GRAFT VERSUS HOST DISEASE
     Dosage: 0.7 MG, 2X/DAY
     Route: 048
     Dates: start: 20160106, end: 20160109
  7. BUSULFAN [Concomitant]
     Active Substance: BUSULFAN
  8. URSO [Concomitant]
     Active Substance: URSODIOL
     Indication: VENOOCCLUSIVE DISEASE
     Dosage: UNK
     Dates: end: 20151204
  9. METHOTREXATE [Concomitant]
     Active Substance: METHOTREXATE
     Indication: PROPHYLAXIS AGAINST GRAFT VERSUS HOST DISEASE
     Dosage: 16 MG, 1X/DAY
     Route: 040
     Dates: start: 20151126, end: 20151126
  10. METHOTREXATE [Concomitant]
     Active Substance: METHOTREXATE
     Dosage: 11.5 MG, 1X/DAY
     Route: 041
     Dates: start: 20151201, end: 20151201
  11. FLUDARABINE [Concomitant]
     Active Substance: FLUDARABINE PHOSPHATE
  12. URSO [Concomitant]
     Active Substance: URSODIOL
     Dosage: UNK
     Route: 048
     Dates: start: 20151222
  13. TACROLIMUS. [Suspect]
     Active Substance: TACROLIMUS
     Indication: PROPHYLAXIS AGAINST GRAFT VERSUS HOST DISEASE
     Dosage: 1.16 MG, 1X/DAY
     Route: 041
     Dates: start: 20151124, end: 20160105
  14. AMLODIPINE [Concomitant]
     Active Substance: AMLODIPINE BESYLATE
     Indication: HYPERTENSION
     Dosage: 5 MG, 1X/DAY
     Route: 048
     Dates: start: 20151226, end: 20160101
  15. TACROLIMUS. [Suspect]
     Active Substance: TACROLIMUS
     Dosage: 0.04 MG, DAILY
     Route: 041
     Dates: start: 20160121, end: 201601
  16. VFEND [Suspect]
     Active Substance: VORICONAZOLE
     Dosage: 180 MG, 2X/DAY
     Route: 041
     Dates: start: 201512, end: 20151221

REACTIONS (4)
  - Drug level increased [Recovering/Resolving]
  - Liver disorder [Recovered/Resolved]
  - White blood cell count increased [Recovering/Resolving]
  - Renal disorder [Recovered/Resolved]

NARRATIVE: CASE EVENT DATE: 201512
